FAERS Safety Report 5876283-8 (Version None)
Quarter: 2008Q3

REPORT INFORMATION
  Report Type: 
  Country: None (occurrence: None)
  Receive Date: 20080910
  Receipt Date: 20080903
  Transmission Date: 20090109
  Serious: Yes (Other)
  Sender: FDA-Public Use
  Company Number: US-BAYER-200812583BCC

PATIENT
  Age: 53 Year
  Sex: Female
  Weight: 91 kg

DRUGS (6)
  1. ORIGINAL ALKA-SELTZER TABLETS [Suspect]
     Indication: DYSPEPSIA
     Route: 048
     Dates: start: 19800101
  2. ORIGINAL ALKA-SELTZER TABLETS [Suspect]
     Route: 048
     Dates: start: 19900101
  3. ALKA-SELTZER CHERRY TABLETS [Suspect]
     Indication: DYSPEPSIA
     Route: 048
     Dates: start: 19800101
  4. ALKA-SELTZER CHERRY TABLETS [Suspect]
     Route: 048
     Dates: start: 19900101
  5. ALKA-SELTZER HEARTBURN RELIEF [Suspect]
     Indication: DYSPEPSIA
     Route: 048
     Dates: start: 19800101
  6. ALKA-SELTZER HEARTBURN RELIEF [Suspect]
     Route: 048
     Dates: start: 19900101

REACTIONS (6)
  - ALOPECIA [None]
  - BLOOD PRESSURE INCREASED [None]
  - DYSPEPSIA [None]
  - FLUID RETENTION [None]
  - GASTROOESOPHAGEAL REFLUX DISEASE [None]
  - LOCAL SWELLING [None]
